FAERS Safety Report 6989278-8 (Version None)
Quarter: 2010Q3

REPORT INFORMATION
  Report Type: 
  Country: None (occurrence: None)
  Receive Date: 20100916
  Receipt Date: 20091201
  Transmission Date: 20110219
  Serious: Yes (Other)
  Sender: FDA-Public Use
  Company Number: CA-PFIZER INC-2009264403

PATIENT
  Sex: Male

DRUGS (1)
  1. PREGABALIN [Suspect]
     Indication: NEURECTOMY
     Dosage: 150 MG, 2X/DAY
     Route: 048
     Dates: start: 20070201, end: 20070801

REACTIONS (1)
  - LOW DENSITY LIPOPROTEIN INCREASED [None]
